FAERS Safety Report 10628251 (Version 4)
Quarter: 2015Q1

REPORT INFORMATION
  Report Type: Spontaneous
  Country: US (occurrence: US)
  Receive Date: 20141205
  Receipt Date: 20150115
  Transmission Date: 20150720
  Serious: No
  Sender: FDA-Public Use
  Company Number: US-BRISTOL-MYERS SQUIBB COMPANY-21577192

PATIENT
  Sex: Female
  Weight: 89 kg

DRUGS (2)
  1. COUMADIN [Suspect]
     Active Substance: WARFARIN SODIUM
     Dosage: 3 MG
     Route: 058
  2. COUMADIN [Suspect]
     Active Substance: WARFARIN SODIUM
     Indication: PRODUCT USED FOR UNKNOWN INDICATION
     Dosage: 1 DF, QWK
     Route: 058

REACTIONS (5)
  - International normalised ratio decreased [Unknown]
  - Body height decreased [Unknown]
  - Product quality issue [Unknown]
  - Drug ineffective [Unknown]
  - Medication error [Unknown]
